FAERS Safety Report 10863574 (Version 4)
Quarter: 2015Q3

REPORT INFORMATION
  Report Type: Report from Study
  Country: JP (occurrence: JP)
  Receive Date: 20150224
  Receipt Date: 20150929
  Transmission Date: 20151125
  Serious: Yes (Life-Threatening, Hospitalization)
  Sender: FDA-Public Use
  Company Number: JP-INCYTE CORPORATION-2015IN000744

PATIENT
  Age: 54 Year
  Sex: Male

DRUGS (9)
  1. FUNGUARD [Suspect]
     Active Substance: MICAFUNGIN SODIUM
     Indication: INFECTION
     Dosage: 50 MG, UNK
     Route: 042
     Dates: start: 20150209, end: 20150216
  2. JAKAFI [Suspect]
     Active Substance: RUXOLITINIB
     Indication: MYELOFIBROSIS
     Dosage: 10 MG, BID
     Route: 048
     Dates: start: 201410, end: 201412
  3. JAKAFI [Suspect]
     Active Substance: RUXOLITINIB
     Dosage: 20 MG, BID
     Route: 048
     Dates: start: 201412
  4. FUNGUARD [Suspect]
     Active Substance: MICAFUNGIN SODIUM
     Indication: RENAL FAILURE
     Dosage: 150 UNK; INTRAVENOUS
     Route: 042
     Dates: end: 20150206
  5. SAMSCA [Suspect]
     Active Substance: TOLVAPTAN
     Indication: RENAL FAILURE
  6. MEROPEN [Concomitant]
     Active Substance: MEROPENEM
     Indication: PRODUCT USED FOR UNKNOWN INDICATION
     Dosage: 1 G, UNK
     Route: 042
     Dates: start: 20150204, end: 20150216
  7. RED BLOOD CELLS [Concomitant]
     Active Substance: HUMAN RED BLOOD CELL
     Indication: MYELOFIBROSIS
     Dosage: 400 ML, UNK
     Route: 065
     Dates: start: 20150206, end: 20150216
  8. JAKAFI [Suspect]
     Active Substance: RUXOLITINIB
     Dosage: 20 MG, BID
     Route: 048
     Dates: start: 20150203, end: 20150216
  9. SAMSCA [Suspect]
     Active Substance: TOLVAPTAN
     Indication: INFECTION
     Dosage: 3.75 MG, UNK
     Route: 048
     Dates: end: 20150209

REACTIONS (4)
  - Haemoglobin decreased [Unknown]
  - Hepatic function abnormal [Recovering/Resolving]
  - Infection [Recovering/Resolving]
  - Renal failure [Recovering/Resolving]

NARRATIVE: CASE EVENT DATE: 20150129
